FAERS Safety Report 7071096-6 (Version None)
Quarter: 2010Q4

REPORT INFORMATION
  Report Type: 
  Country: None (occurrence: None)
  Receive Date: 20101029
  Receipt Date: 20101020
  Transmission Date: 20110411
  Serious: No
  Sender: FDA-Public Use
  Company Number: US-PFIZER INC-2010133712

PATIENT
  Sex: Female
  Weight: 61.224 kg

DRUGS (1)
  1. SERTRALINE HYDROCHLORIDE [Suspect]
     Indication: DEPRESSION
     Dosage: 100 MG, 1X/DAY
     Route: 048
     Dates: start: 20070101

REACTIONS (6)
  - ALCOHOL USE [None]
  - ANGER [None]
  - LOGORRHOEA [None]
  - MOOD ALTERED [None]
  - RESTLESSNESS [None]
  - TOBACCO USER [None]
